FAERS Safety Report 6053996-9 (Version None)
Quarter: 2009Q1

REPORT INFORMATION
  Report Type: 
  Country: None (occurrence: None)
  Receive Date: 20090127
  Receipt Date: 20081223
  Transmission Date: 20090719
  Serious: No
  Sender: FDA-Public Use
  Company Number: US-BAYER-200841500NA

PATIENT
  Age: 46 Year
  Sex: Male
  Weight: 98 kg

DRUGS (6)
  1. ULTRAVIST 370 [Suspect]
     Indication: COMPUTERISED TOMOGRAM ABDOMEN
     Dosage: TOTAL DAILY DOSE: 120 ML  UNIT DOSE: 500 ML
     Route: 042
     Dates: start: 20081223, end: 20081223
  2. ULTRAVIST 370 [Suspect]
     Route: 048
     Dates: start: 20081223, end: 20081223
  3. NEXIUM [Concomitant]
  4. FLOMAX [Concomitant]
  5. LOTREL [Concomitant]
  6. PROZAC [Concomitant]
     Indication: DEPRESSION

REACTIONS (2)
  - PRURITUS [None]
  - URTICARIA [None]
